FAERS Safety Report 21919348 (Version 1)
Quarter: 2023Q1

REPORT INFORMATION
  Report Type: Report from Study
  Country: US (occurrence: US)
  Receive Date: 20230127
  Receipt Date: 20230127
  Transmission Date: 20230417
  Serious: Yes (Other)
  Sender: FDA-Public Use
  Company Number: US-JNJFOC-20230146266

PATIENT
  Age: 45 Year
  Sex: Female

DRUGS (7)
  1. SPRAVATO [Suspect]
     Active Substance: ESKETAMINE
     Indication: Depression
     Dosage: 56 MG, 2 TOTAL DOSES
     Dates: start: 20220712, end: 20220715
  2. SPRAVATO [Suspect]
     Active Substance: ESKETAMINE
     Dosage: 84 MG, 1 TOTAL DOSE
     Dates: start: 20220719, end: 20220719
  3. SPRAVATO [Suspect]
     Active Substance: ESKETAMINE
     Dosage: 56 MG, 13 TOTAL DOSES
     Dates: start: 20220726, end: 20221130
  4. SPRAVATO [Suspect]
     Active Substance: ESKETAMINE
     Dosage: 84 MG, 3 TOTAL DOSES
     Dates: start: 20221207, end: 20221228
  5. SPRAVATO [Suspect]
     Active Substance: ESKETAMINE
     Dosage: 56 MG, 2 TOTAL DOSES
     Dates: start: 20230104, end: 20230111
  6. SPRAVATO [Suspect]
     Active Substance: ESKETAMINE
     Dosage: 56 MG, MOST RECENT DOSE
     Dates: start: 20230118, end: 20230118
  7. KLONOPIN [Concomitant]
     Active Substance: CLONAZEPAM

REACTIONS (4)
  - Fall [Unknown]
  - Head injury [Unknown]
  - Lip haemorrhage [Unknown]
  - Skin abrasion [Unknown]

NARRATIVE: CASE EVENT DATE: 20230118
